FAERS Safety Report 26139151 (Version 1)
Quarter: 2025Q4

REPORT INFORMATION
  Report Type: Spontaneous
  Country: US (occurrence: US)
  Receive Date: 20251210
  Receipt Date: 20251210
  Transmission Date: 20260118
  Serious: Yes (Other)
  Sender: CELLTRION
  Company Number: US-CELLTRION INC.-2025US044066

PATIENT

DRUGS (1)
  1. RITUXIMAB [Suspect]
     Active Substance: RITUXIMAB
     Indication: Meningitis aseptic
     Dosage: EVERY 6 MONTHS (LAST ADMINISTERED DOSE THREE MONTHS BEFORE ADMISSION)

REACTIONS (5)
  - Immunosuppression [Unknown]
  - Hypogammaglobulinaemia [Unknown]
  - Lymphopenia [Unknown]
  - Meningitis leptospiral [Recovered/Resolved]
  - Intentional product use issue [Unknown]
